FAERS Safety Report 5319897-6 (Version None)
Quarter: 2007Q2

REPORT INFORMATION
  Report Type: 
  Country: None (occurrence: None)
  Receive Date: 20070503
  Receipt Date: 20070418
  Transmission Date: 20071010
  Serious: Yes (Other)
  Sender: FDA-Public Use
  Company Number: 2007S1003363

PATIENT
  Age: 48 Year
  Sex: Female

DRUGS (9)
  1. FENTANYL TRANSDERMAL SYSTEM [Suspect]
     Indication: BACK PAIN
     Dosage: 50 UG/HR; EVERY 3 DAYS; TRANSDERMAL
     Route: 062
     Dates: start: 20061101
  2. METHYLPHENIDATE HCL [Concomitant]
  3. LEVOTHYROXINE SODIUM [Concomitant]
  4. SPIRONOLACTONE [Concomitant]
  5. QUETIAPINE FUMARATE [Concomitant]
  6. ESTRADIOL [Concomitant]
  7. PROGESTERONE [Concomitant]
  8. ACETAMINOPHEN AND OXYCODONE HCL [Concomitant]
  9. HYDROXYZINE HYDROCHLORIDE [Concomitant]

REACTIONS (11)
  - ABDOMINAL PAIN LOWER [None]
  - ANXIETY [None]
  - BACK PAIN [None]
  - CHILLS [None]
  - CONFUSIONAL STATE [None]
  - HYPERHIDROSIS [None]
  - INCORRECT DOSE ADMINISTERED [None]
  - NEPHROLITHIASIS [None]
  - RED BLOOD CELLS URINE POSITIVE [None]
  - SOMNOLENCE [None]
  - WHITE BLOOD CELLS URINE POSITIVE [None]
